FAERS Safety Report 8558347-3 (Version None)
Quarter: 2012Q3

REPORT INFORMATION
  Report Type: 
  Country: None (occurrence: None)
  Receive Date: 20120727
  Receipt Date: 20120727
  Transmission Date: 20120928
  Serious: Yes (Hospitalization)
  Sender: FDA-Public Use
  Company Number: None

PATIENT
  Age: 91 Year
  Sex: Female
  Weight: 43.1 kg

DRUGS (11)
  1. LORAZEPAM [Suspect]
     Indication: ANXIETY
     Dosage: 0.5 MG, ONCE, IV
     Route: 042
  2. LORAZEPAM [Suspect]
     Indication: DYSPNOEA
     Dosage: 0.5 MG, ONCE, IV
     Route: 042
  3. ZANTAC [Concomitant]
  4. FLONASE [Concomitant]
  5. MEGACE [Concomitant]
  6. CALCIUM CARBONATE [Concomitant]
  7. AMIODARONE HCL [Concomitant]
  8. MIRTAZAPINE [Concomitant]
  9. BIOTENE [Concomitant]
  10. METOPROLOL TARTRATE [Concomitant]
  11. VITAMIN D [Concomitant]

REACTIONS (5)
  - DEPRESSED LEVEL OF CONSCIOUSNESS [None]
  - BLOOD PH DECREASED [None]
  - SOMNOLENCE [None]
  - AGITATION [None]
  - PNEUMONIA [None]
